FAERS Safety Report 5185798-X (Version None)
Quarter: 2006Q4

REPORT INFORMATION
  Report Type: 
  Country: None (occurrence: None)
  Receive Date: 20061220
  Receipt Date: 20060913
  Transmission Date: 20070319
  Serious: No
  Sender: FDA-Public Use
  Company Number: US-GLAXOSMITHKLINE-A0619991A

PATIENT
  Age: 25 Year
  Sex: Female

DRUGS (1)
  1. TARGET NTS 21MG [Suspect]
     Dates: start: 20060911

REACTIONS (4)
  - APPLICATION SITE PRURITUS [None]
  - DYSPNOEA [None]
  - PAIN IN EXTREMITY [None]
  - SENSATION OF PRESSURE [None]
